FAERS Safety Report 5289203-4 (Version None)
Quarter: 2007Q1

REPORT INFORMATION
  Report Type: 
  Country: None (occurrence: None)
  Receive Date: 20070124
  Receipt Date: 20060314
  Transmission Date: 20070707
  Serious: No
  Sender: FDA-Public Use
  Company Number: A001-002-006815

PATIENT
  Age: 80 Year
  Sex: Male

DRUGS (1)
  1. ARICEPT [Suspect]
     Dosage: SEE IMAGE
     Route: 048

REACTIONS (1)
  - CONVULSION [None]
